FAERS Safety Report 24801734 (Version 1)
Quarter: 2025Q1

REPORT INFORMATION
  Report Type: Other
  Country: US (occurrence: US)
  Receive Date: 20250102
  Receipt Date: 20250102
  Transmission Date: 20250409
  Serious: Yes (Hospitalization, Other)
  Sender: HLS THERAPEUTICS
  Company Number: US-HLS-202400139

PATIENT
  Age: 48 Year
  Sex: Female

DRUGS (5)
  1. CLOZAPINE [Suspect]
     Active Substance: CLOZAPINE
     Indication: Schizophrenia
     Route: 065
  2. HALOPERIDOL DECANOATE [Concomitant]
     Active Substance: HALOPERIDOL DECANOATE
     Indication: Psychiatric symptom
     Route: 065
  3. HALOPERIDOL DECANOATE [Concomitant]
     Active Substance: HALOPERIDOL DECANOATE
     Indication: Psychiatric symptom
     Route: 030
  4. HALOPERIDOL DECANOATE [Concomitant]
     Active Substance: HALOPERIDOL DECANOATE
     Indication: Psychiatric symptom
     Route: 065
  5. OLANZAPINE [Concomitant]
     Active Substance: OLANZAPINE
     Indication: Psychiatric symptom
     Route: 048

REACTIONS (8)
  - Weight increased [Unknown]
  - Asthenia [Unknown]
  - Chills [Unknown]
  - Hepatotoxicity [Recovered/Resolved]
  - Decreased appetite [Unknown]
  - Malaise [Unknown]
  - Abdominal pain upper [Unknown]
  - Jaundice [Unknown]
